FAERS Safety Report 10558715 (Version 1)
Quarter: 2014Q4

REPORT INFORMATION
  Report Type: Report from Study
  Country: BR (occurrence: BR)
  Receive Date: 20141031
  Receipt Date: 20141031
  Transmission Date: 20150529
  Serious: Yes (Hospitalization, Other)
  Sender: FDA-Public Use
  Company Number: BR-ABBVIE-14K-020-1300002-00

PATIENT
  Sex: Female
  Weight: 59 kg

DRUGS (12)
  1. HUMIRA [Suspect]
     Active Substance: ADALIMUMAB
     Indication: RHEUMATOID ARTHRITIS
     Route: 058
     Dates: start: 2010
  2. PREDSIM [Concomitant]
     Active Substance: PREDNISOLONE
     Indication: ARTHRITIS
     Route: 048
  3. CORUS [Concomitant]
     Active Substance: LOSARTAN POTASSIUM
     Indication: BLOOD PRESSURE ABNORMAL
     Route: 048
     Dates: start: 2007
  4. NATRILIX [Concomitant]
     Active Substance: INDAPAMIDE
     Indication: BLOOD PRESSURE ABNORMAL
     Route: 048
     Dates: start: 2007
  5. OMEPRAZOLE. [Concomitant]
     Active Substance: OMEPRAZOLE
     Indication: GASTRIC DISORDER
     Route: 058
     Dates: start: 1999
  6. OS-CAL [Concomitant]
     Indication: ARTHRITIS
     Route: 048
     Dates: start: 2007
  7. ARAVA [Concomitant]
     Active Substance: LEFLUNOMIDE
     Indication: ARTHRITIS
     Route: 048
     Dates: start: 2004
  8. PROLIVE [Concomitant]
     Indication: DYSBACTERIOSIS
     Route: 048
     Dates: start: 201401
  9. SLOW K [Concomitant]
     Active Substance: POTASSIUM CHLORIDE
     Indication: ELECTROLYTE SUBSTITUTION THERAPY
     Route: 048
     Dates: start: 2009
  10. SLOW K [Concomitant]
     Active Substance: POTASSIUM CHLORIDE
     Indication: ELECTROLYTE SUBSTITUTION THERAPY
  11. HUMIRA [Suspect]
     Active Substance: ADALIMUMAB
     Route: 058
  12. OMEPRAZOLE. [Concomitant]
     Active Substance: OMEPRAZOLE
     Indication: PROPHYLAXIS

REACTIONS (6)
  - Drug-induced liver injury [Recovering/Resolving]
  - Gastrointestinal infection [Recovering/Resolving]
  - Injection site pain [Unknown]
  - Viral infection [Recovered/Resolved]
  - Pleurisy [Recovering/Resolving]
  - Painful respiration [Recovering/Resolving]

NARRATIVE: CASE EVENT DATE: 2012
